FAERS Safety Report 11814205 (Version 1)
Quarter: 2015Q4

REPORT INFORMATION
  Report Type: Report from Study
  Country: CA (occurrence: CA)
  Receive Date: 20151209
  Receipt Date: 20151209
  Transmission Date: 20160305
  Serious: Yes (Life-Threatening, Hospitalization)
  Sender: FDA-Public Use
  Company Number: PHHY2015CA159549

PATIENT
  Age: 55 Year
  Sex: Female

DRUGS (2)
  1. VOTRIENT [Suspect]
     Active Substance: PAZOPANIB HYDROCHLORIDE
     Indication: RENAL CELL CARCINOMA
     Route: 065
     Dates: start: 20150407, end: 20150414
  2. AFINITOR [Suspect]
     Active Substance: EVEROLIMUS
     Indication: RENAL CELL CARCINOMA
     Route: 065
     Dates: start: 201405, end: 201509

REACTIONS (6)
  - Vomiting [Recovering/Resolving]
  - Lung neoplasm [Recovering/Resolving]
  - Herpes zoster [Recovering/Resolving]
  - Second primary malignancy [Recovering/Resolving]
  - Pyrexia [Recovering/Resolving]
  - Blood glucose increased [Recovering/Resolving]

NARRATIVE: CASE EVENT DATE: 201408
